FAERS Safety Report 25753828 (Version 1)
Quarter: 2025Q3

REPORT INFORMATION
  Report Type: Spontaneous
  Country: TR (occurrence: TR)
  Receive Date: 20250903
  Receipt Date: 20250903
  Transmission Date: 20251021
  Serious: Yes (Other)
  Sender: ALKEM
  Company Number: TR-ALKEM LABORATORIES LIMITED-TR-ALKEM-2025-09480

PATIENT

DRUGS (1)
  1. DICLOFENAC [Suspect]
     Active Substance: DICLOFENAC
     Indication: Product used for unknown indication
     Route: 030

REACTIONS (1)
  - Embolia cutis medicamentosa [Unknown]
